FAERS Safety Report 7326393-3 (Version None)
Quarter: 2011Q1

REPORT INFORMATION
  Report Type: 
  Country: None (occurrence: None)
  Receive Date: 20110302
  Receipt Date: 20110224
  Transmission Date: 20110831
  Serious: No
  Sender: FDA-Public Use
  Company Number: US-ABBOTT-11P-163-0707306-00

PATIENT
  Sex: Female
  Weight: 32.234 kg

DRUGS (2)
  1. DEPAKENE [Suspect]
     Indication: POST-TRAUMATIC STRESS DISORDER
  2. DEPAKENE [Suspect]
     Indication: DEPRESSION
     Dosage: 1250 MG/ML DAILY
     Dates: start: 20100510, end: 20101201

REACTIONS (1)
  - ALOPECIA [None]
